FAERS Safety Report 10282948 (Version 1)
Quarter: 2014Q3

REPORT INFORMATION
  Report Type: Spontaneous
  Country: US (occurrence: US)
  Receive Date: 20140708
  Receipt Date: 20140708
  Transmission Date: 20150326
  Serious: No
  Sender: FDA-Public Use
  Company Number: US-BIOGENIDEC-2014BI064462

PATIENT
  Age: 49 Year
  Sex: Male

DRUGS (6)
  1. BUPIVACAINE [Concomitant]
     Active Substance: BUPIVACAINE
     Indication: BACK PAIN
     Route: 037
  2. BACLOFEN. [Concomitant]
     Active Substance: BACLOFEN
     Indication: BACK PAIN
     Route: 037
  3. TYSABRI [Suspect]
     Active Substance: NATALIZUMAB
     Indication: MULTIPLE SCLEROSIS
     Route: 042
     Dates: start: 20110603, end: 201402
  4. AVONEX [Concomitant]
     Active Substance: INTERFERON BETA-1A
     Indication: MULTIPLE SCLEROSIS
     Route: 030
     Dates: start: 20070603
  5. MORPHINE [Concomitant]
     Active Substance: MORPHINE
     Indication: BACK PAIN
     Route: 037
  6. PREDNISONE. [Concomitant]
     Active Substance: PREDNISONE
     Indication: MULTIPLE SCLEROSIS
     Dates: start: 201402

REACTIONS (5)
  - Psoriatic arthropathy [Not Recovered/Not Resolved]
  - Incision site swelling [Not Recovered/Not Resolved]
  - Hypersomnia [Not Recovered/Not Resolved]
  - Device issue [Recovered/Resolved]
  - Insomnia [Recovered/Resolved]

NARRATIVE: CASE EVENT DATE: 201402
